FAERS Safety Report 5455767-0 (Version None)
Quarter: 2007Q3

REPORT INFORMATION
  Report Type: 
  Country: None (occurrence: None)
  Receive Date: 20070918
  Receipt Date: 20070702
  Transmission Date: 20080115
  Serious: Yes (Other)
  Sender: FDA-Public Use
  Company Number: US-ASTRAZENECA-2006UW22516

PATIENT
  Age: 17562 Day
  Sex: Female
  Weight: 77.3 kg

DRUGS (6)
  1. SEROQUEL [Suspect]
     Indication: ANXIETY
     Route: 048
     Dates: start: 19970101
  2. HALDOL [Concomitant]
  3. NAVANE [Concomitant]
  4. RISPERDAL [Concomitant]
  5. STELAZINE [Concomitant]
  6. THORAZINE [Concomitant]

REACTIONS (2)
  - TARDIVE DYSKINESIA [None]
  - TYPE 2 DIABETES MELLITUS [None]
